FAERS Safety Report 4557693-8 (Version None)
Quarter: 2005Q1

REPORT INFORMATION
  Report Type: 
  Country: None (occurrence: None)
  Receive Date: 20050118
  Receipt Date: 20050104
  Transmission Date: 20050727
  Serious: Yes (Hospitalization)
  Sender: FDA-Public Use
  Company Number: 25951

PATIENT
  Age: 83 Year
  Sex: Male

DRUGS (2)
  1. FLECAINIDE ACETATE [Suspect]
     Route: 048
     Dates: end: 20041126
  2. ATORVASTATIN CALCIUM [Suspect]
     Route: 048
     Dates: start: 20040726, end: 20041126

REACTIONS (2)
  - MYCOSIS FUNGOIDES [None]
  - PERIPHERAL T-CELL LYMPHOMA UNSPECIFIED [None]
